FAERS Safety Report 8333774-8 (Version None)
Quarter: 2012Q2

REPORT INFORMATION
  Report Type: 
  Country: None (occurrence: None)
  Receive Date: 20120503
  Receipt Date: 20120423
  Transmission Date: 20120825
  Serious: Yes (Hospitalization)
  Sender: FDA-Public Use
  Company Number: JP-ELI_LILLY_AND_COMPANY-JP201109006078

PATIENT
  Age: 75 Year
  Sex: Female

DRUGS (4)
  1. CEFAZOLIN SODIUM [Concomitant]
  2. PROMACTA [Concomitant]
  3. SUNNYASE [Concomitant]
  4. FORTEO [Suspect]
     Dosage: UNK
     Route: 058
     Dates: start: 20110905

REACTIONS (8)
  - MALAISE [None]
  - BREAST CANCER [None]
  - ABDOMINAL DISTENSION [None]
  - STOMATITIS [None]
  - NAUSEA [None]
  - ARTHRITIS [None]
  - WRONG TECHNIQUE IN DRUG USAGE PROCESS [None]
  - INCORRECT STORAGE OF DRUG [None]
